FAERS Safety Report 23544265 (Version 1)
Quarter: 2024Q1

REPORT INFORMATION
  Report Type: Spontaneous
  Country: FR (occurrence: FR)
  Receive Date: 20240220
  Receipt Date: 20240220
  Transmission Date: 20240410
  Serious: Yes (Hospitalization)
  Sender: FDA-Public Use
  Company Number: None

PATIENT
  Age: 73 Year
  Sex: Female
  Weight: 37 kg

DRUGS (1)
  1. VALIUM [Suspect]
     Active Substance: DIAZEPAM
     Indication: Generalised tonic-clonic seizure
     Dosage: VALIUM ROCHE 10 MG/2 ML, SOLUTION INJECTABLE [DIAZEPAM]
     Route: 050
     Dates: start: 20231215, end: 20231220

REACTIONS (3)
  - Coma [Recovered/Resolved]
  - Respiratory acidosis [Recovered/Resolved]
  - Hypercapnia [Recovered/Resolved]

NARRATIVE: CASE EVENT DATE: 20231220
